FAERS Safety Report 13760324 (Version 5)
Quarter: 2017Q4

REPORT INFORMATION
  Report Type: Spontaneous
  Country: NO (occurrence: NO)
  Receive Date: 20170717
  Receipt Date: 20171201
  Transmission Date: 20180320
  Serious: Yes (Life-Threatening, Hospitalization)
  Sender: FDA-Public Use
  Company Number: NO-SA-2017SA124971

PATIENT
  Age: 22 Year
  Sex: Female

DRUGS (3)
  1. CETIRIZINE [Concomitant]
     Active Substance: CETIRIZINE HYDROCHLORIDE
     Indication: HYPERSENSITIVITY
  2. PANTOPRAZOLE [Concomitant]
     Active Substance: PANTOPRAZOLE
     Indication: GASTROOESOPHAGEAL REFLUX DISEASE
  3. LEMTRADA [Suspect]
     Active Substance: ALEMTUZUMAB
     Indication: MULTIPLE SCLEROSIS
     Route: 041
     Dates: start: 201610, end: 201610

REACTIONS (8)
  - Feeling abnormal [Not Recovered/Not Resolved]
  - Anuria [Not Recovered/Not Resolved]
  - Haemoglobin urine present [Unknown]
  - Goodpasture^s syndrome [Not Recovered/Not Resolved]
  - Protein urine present [Unknown]
  - Anti-glomerular basement membrane antibody [Unknown]
  - Acute kidney injury [Not Recovered/Not Resolved]
  - Chromaturia [Not Recovered/Not Resolved]

NARRATIVE: CASE EVENT DATE: 2017
